FAERS Safety Report 9773879 (Version 3)
Quarter: 2014Q1

REPORT INFORMATION
  Report Type: Spontaneous
  Country: JP (occurrence: JP)
  Receive Date: 20131220
  Receipt Date: 20140210
  Transmission Date: 20141002
  Serious: Yes (Other)
  Sender: FDA-Public Use
  Company Number: JP-AMGEN-JPNSP2013089007

PATIENT
  Age: 84 Year
  Sex: Male
  Weight: 59 kg

DRUGS (14)
  1. RANMARK [Suspect]
     Indication: METASTASES TO BONE
     Dosage: 120 MG, UNK
     Route: 058
     Dates: start: 20131031
  2. RANMARK [Suspect]
     Indication: PLASMA CELL MYELOMA
  3. DIART [Suspect]
     Indication: RENAL FAILURE CHRONIC
     Dosage: 30 MG, QD
     Route: 048
     Dates: start: 20130702, end: 20131210
  4. PREDNISOLONE [Concomitant]
     Indication: PLASMA CELL MYELOMA
     Route: 048
     Dates: start: 20130608
  5. NEUFAN [Concomitant]
     Indication: HYPERURICAEMIA
     Route: 048
     Dates: start: 20130608
  6. MUCOSTA [Concomitant]
     Indication: GASTRITIS
     Route: 048
     Dates: start: 20130608
  7. ELPINAN [Concomitant]
     Indication: RENAL FAILURE CHRONIC
     Route: 048
     Dates: start: 20130608
  8. SENNOSIDE                          /00571901/ [Concomitant]
     Indication: CONSTIPATION
     Route: 048
     Dates: start: 20130608
  9. KREMEZIN [Concomitant]
     Indication: RENAL FAILURE CHRONIC
     Route: 048
     Dates: start: 20130608
  10. NIFEDIPINE [Concomitant]
     Indication: HYPERTENSION
     Route: 048
     Dates: start: 20130608
  11. AMARYL [Concomitant]
     Indication: DIABETES MELLITUS
     Route: 048
     Dates: start: 20130702, end: 20131211
  12. EQUA [Concomitant]
     Indication: DIABETES MELLITUS
     Route: 048
     Dates: start: 20130702, end: 20131211
  13. CALFINA [Concomitant]
     Route: 048
     Dates: start: 20131031
  14. CALCIUM LACTATE [Concomitant]
     Route: 048
     Dates: start: 20131031, end: 20131107

REACTIONS (1)
  - Renal impairment [Unknown]
